FAERS Safety Report 5153832-9 (Version None)
Quarter: 2006Q4

REPORT INFORMATION
  Report Type: 
  Country: None (occurrence: None)
  Receive Date: 20061120
  Receipt Date: 20051212
  Transmission Date: 20070319
  Serious: Yes (Death, Hospitalization)
  Sender: FDA-Public Use
  Company Number: PHHO2005NL19356

PATIENT
  Age: 58 Year
  Sex: Female

DRUGS (1)
  1. LETROZOLE [Suspect]
     Indication: BREAST CANCER METASTATIC
     Dosage: 2.5 MG, QD
     Route: 048
     Dates: start: 20050324, end: 20051130

REACTIONS (5)
  - DEATH [None]
  - DYSPNOEA [None]
  - GRANULOMA [None]
  - HEPATIC FUNCTION ABNORMAL [None]
  - THROMBOCYTOPENIA [None]
